FAERS Safety Report 9197644 (Version 2)
Quarter: 2013Q3

REPORT INFORMATION
  Report Type: Spontaneous
  Country: JP (occurrence: JP)
  Receive Date: 20130328
  Receipt Date: 20130716
  Transmission Date: 20140515
  Serious: Yes (Death, Other)
  Sender: FDA-Public Use
  Company Number: PHHY2013JP025756

PATIENT
  Sex: 0

DRUGS (4)
  1. NEORAL [Suspect]
     Indication: BONE MARROW TRANSPLANT
  2. PROGRAF [Suspect]
  3. CYTOSINE ARABINOSIDE [Concomitant]
  4. CYCLOPHOSPHAMIDE [Concomitant]

REACTIONS (8)
  - Cerebral haemorrhage [Fatal]
  - Acute disseminated encephalomyelitis [Unknown]
  - Herpes zoster [Unknown]
  - Posterior reversible encephalopathy syndrome [Recovering/Resolving]
  - Hypoaesthesia [Unknown]
  - Muscular weakness [Unknown]
  - Monoplegia [Unknown]
  - Sensory disturbance [Unknown]
